FAERS Safety Report 15431270 (Version 1)
Quarter: 2018Q3

REPORT INFORMATION
  Report Type: Spontaneous
  Country: US (occurrence: US)
  Receive Date: 20180921
  Receipt Date: 20180921
  Transmission Date: 20181010
  Serious: Yes (Other)
  Sender: FDA-Public Use
  Company Number: None

PATIENT
  Age: 38 Year
  Sex: Female
  Weight: 70.76 kg

DRUGS (2)
  1. SUBOXONE [Suspect]
     Active Substance: BUPRENORPHINE HYDROCHLORIDE\NALOXONE HYDROCHLORIDE
  2. BUPRENORPHINE HC1 [Concomitant]
     Dates: start: 20180912, end: 20180920

REACTIONS (3)
  - Tongue eruption [None]
  - Burning sensation [None]
  - Oral mucosal eruption [None]

NARRATIVE: CASE EVENT DATE: 20180912
